FAERS Safety Report 5757861-3 (Version None)
Quarter: 2008Q2

REPORT INFORMATION
  Report Type: 
  Country: None (occurrence: None)
  Receive Date: 20080530
  Receipt Date: 20080519
  Transmission Date: 20081010
  Serious: Yes (Other)
  Sender: FDA-Public Use
  Company Number: 430036J08USA

PATIENT
  Age: 55 Year
  Sex: Female

DRUGS (1)
  1. NOVANTRONE [Suspect]
     Indication: MULTIPLE SCLEROSIS
     Dates: start: 20070701, end: 20070701

REACTIONS (2)
  - CARDIAC DISORDER [None]
  - CARDIAC VALVE DISEASE [None]
